FAERS Safety Report 16431503 (Version 1)
Quarter: 2019Q2

REPORT INFORMATION
  Report Type: Report from Study
  Country: GB (occurrence: GB)
  Receive Date: 20190614
  Receipt Date: 20190614
  Transmission Date: 20190711
  Serious: Yes (Life-Threatening, Hospitalization, Other)
  Sender: FDA-Public Use
  Company Number: GB-RECRO GAINESVILLE LLC-REPH-2019-000096

PATIENT
  Age: 59 Year
  Sex: Male
  Weight: 80 kg

DRUGS (2)
  1. VERAPAMIL HYDROCHLORIDE SUSTAINED RELEASE [Suspect]
     Active Substance: VERAPAMIL HYDROCHLORIDE
     Dosage: 2.4 GRAM, ONE TIME DOSE
     Route: 048
  2. TENORETIC [Concomitant]
     Active Substance: ATENOLOL\CHLORTHALIDONE
     Indication: HYPERTENSION
     Dosage: 100-25 MILLIGRAM, QD
     Route: 048

REACTIONS (13)
  - Toxicity to various agents [Recovered/Resolved]
  - Cardiac arrest [Recovered/Resolved]
  - Hypotension [Recovered/Resolved]
  - Hyperglycaemia [Recovered/Resolved]
  - Hypokalaemia [Recovered/Resolved]
  - Bradycardia [Unknown]
  - Intentional overdose [Recovered/Resolved]
  - Metabolic acidosis [Recovered/Resolved]
  - Blood creatinine increased [Recovered/Resolved]
  - Cardiac output increased [Recovered/Resolved]
  - Pulmonary arterial wedge pressure increased [Recovered/Resolved]
  - Vascular resistance systemic decreased [Unknown]
  - Oliguria [Recovered/Resolved]
